FAERS Safety Report 4416687-3 (Version None)
Quarter: 2004Q2

REPORT INFORMATION
  Report Type: 
  Country: None (occurrence: None)
  Receive Date: 20040630
  Receipt Date: 20031024
  Transmission Date: 20050107
  Serious: Yes (Hospitalization)
  Sender: FDA-Public Use
  Company Number: WAES 0310USA02871

PATIENT
  Age: 75 Year
  Sex: Female
  Weight: 89.3586 kg

DRUGS (4)
  1. HYZAAR [Suspect]
     Indication: HYPERTENSION
     Dosage: 50-12.5 MG/DAILY/PO
     Route: 048
     Dates: start: 20030805, end: 20030811
  2. COZAAR [Concomitant]
  3. LASIX [Concomitant]
  4. ZAROXOLYN [Concomitant]

REACTIONS (1)
  - PANCREATITIS [None]
